FAERS Safety Report 26069639 (Version 1)
Quarter: 2025Q4

REPORT INFORMATION
  Report Type: Spontaneous
  Country: CN (occurrence: CN)
  Receive Date: 20251120
  Receipt Date: 20251120
  Transmission Date: 20260118
  Serious: Yes (Other)
  Sender: MERCK SHARP & DOHME LLC
  Company Number: CN-009507513-2351357

PATIENT
  Age: 95 Year
  Sex: Male
  Weight: 70 kg

DRUGS (1)
  1. CILASTATIN SODIUM\IMIPENEM [Suspect]
     Active Substance: CILASTATIN SODIUM\IMIPENEM
     Indication: Symptomatic treatment
     Route: 041
     Dates: start: 20251017, end: 20251023

REACTIONS (2)
  - Epilepsy [Recovered/Resolved]
  - PO2 abnormal [Unknown]

NARRATIVE: CASE EVENT DATE: 20251023
